FAERS Safety Report 6122013-4 (Version None)
Quarter: 2009Q1

REPORT INFORMATION
  Report Type: 
  Country: None (occurrence: None)
  Receive Date: 20090316
  Receipt Date: 20090304
  Transmission Date: 20090719
  Serious: Yes (Death)
  Sender: FDA-Public Use
  Company Number: 2008AL011981

PATIENT
  Age: 67 Year
  Sex: Male

DRUGS (31)
  1. DIGOXIN [Suspect]
     Dosage: 0.125MG, DAILY, PO
     Route: 048
     Dates: start: 20060101, end: 20090227
  2. VERAPAMIL [Concomitant]
  3. QUINAPRIL [Concomitant]
  4. FUROSEMIDE [Concomitant]
  5. LIPITOR [Concomitant]
  6. GABAPENTIN [Concomitant]
  7. POTASSIUM CHLORIDE [Concomitant]
  8. TOPROL-XL [Concomitant]
  9. PLAVIX [Concomitant]
  10. ATROVENT [Concomitant]
  11. PRILOSEC [Concomitant]
  12. NITROLINGUAL [Concomitant]
  13. ADVAIR HFA [Concomitant]
  14. FERROUS SULFATE TAB [Concomitant]
  15. ALBUTEROL [Concomitant]
  16. ACETAMINOPHEN AND HYDROCODONE BITARTRATE [Concomitant]
  17. PROAIR HFA [Concomitant]
  18. ISOSORBIDE [Concomitant]
  19. CLOPIDOGREL [Concomitant]
  20. COTRIM [Concomitant]
  21. METRONIDAZOLE [Concomitant]
  22. MAG-OXIDE [Concomitant]
  23. WARFARIN SODIUM [Concomitant]
  24. METOPROLOL [Concomitant]
  25. FEXOFENADINE [Concomitant]
  26. METOLAZONE [Concomitant]
  27. AVELOX [Concomitant]
  28. AMOXICILLIN [Concomitant]
  29. PROVENTIL [Concomitant]
  30. GUAIFENEX [Concomitant]
  31. NITROGLYCERIN [Concomitant]

REACTIONS (1)
  - MULTIPLE INJURIES [None]
